FAERS Safety Report 15951372 (Version 4)
Quarter: 2019Q1

REPORT INFORMATION
  Report Type: Spontaneous
  Country: JP (occurrence: JP)
  Receive Date: 20190212
  Receipt Date: 20190326
  Transmission Date: 20190417
  Serious: Yes (Death)
  Sender: FDA-Public Use
  Company Number: JP-OTSUKA-2019_003933

PATIENT
  Age: 77 Year
  Sex: Male

DRUGS (6)
  1. SAMSCA [Suspect]
     Active Substance: TOLVAPTAN
     Dosage: 11.25 MG, QD
     Route: 048
     Dates: start: 20180817, end: 20190128
  2. AZOSEMIDE [Concomitant]
     Active Substance: AZOSEMIDE
     Indication: FLUID RETENTION
     Dosage: 30 MG, QD
     Route: 048
     Dates: start: 20170607, end: 20190201
  3. SAMSCA [Suspect]
     Active Substance: TOLVAPTAN
     Indication: ASCITES
     Dosage: 3.75 MG, QD
     Route: 048
     Dates: start: 20170911, end: 20180604
  4. SAMSCA [Suspect]
     Active Substance: TOLVAPTAN
     Dosage: 7.5 MG, QD
     Route: 048
     Dates: start: 20180605, end: 20180816
  5. SAMSCA [Suspect]
     Active Substance: TOLVAPTAN
     Indication: CARDIAC FAILURE
     Dosage: 15 MG, QD
     Route: 048
     Dates: start: 20190129, end: 20190201
  6. SPIRONOLACTONE. [Concomitant]
     Active Substance: SPIRONOLACTONE
     Indication: FLUID RETENTION
     Dosage: UNK
     Route: 065

REACTIONS (1)
  - Renal failure [Fatal]

NARRATIVE: CASE EVENT DATE: 20190131
